FAERS Safety Report 20622936 (Version 2)
Quarter: 2022Q2

REPORT INFORMATION
  Report Type: Report from Study
  Country: US (occurrence: US)
  Receive Date: 20220322
  Receipt Date: 20220411
  Transmission Date: 20220721
  Serious: No
  Sender: FDA-Public Use
  Company Number: US-KYOWAKIRIN-2022BKK003849

PATIENT

DRUGS (3)
  1. CRYSVITA [Suspect]
     Active Substance: BUROSUMAB-TWZA
     Indication: Hereditary hypophosphataemic rickets
     Dosage: UNK, 1X/4 WEEKS
     Route: 065
     Dates: start: 2021
  2. CRYSVITA [Suspect]
     Active Substance: BUROSUMAB-TWZA
     Dosage: UNK, 1X/4 WEEKS
     Route: 065
     Dates: start: 20220216
  3. FLEXERIL [Concomitant]
     Active Substance: CYCLOBENZAPRINE HYDROCHLORIDE
     Indication: Product used for unknown indication
     Dosage: 1/4-1/2, EACH NIGHT
     Route: 065

REACTIONS (18)
  - Lethargy [Unknown]
  - Agitation [Unknown]
  - Mood swings [Unknown]
  - Bone pain [Unknown]
  - Arthralgia [Unknown]
  - Condition aggravated [Unknown]
  - Joint stiffness [Unknown]
  - Gait disturbance [Unknown]
  - Fatigue [Unknown]
  - Asthenia [Unknown]
  - Restless arm syndrome [Unknown]
  - Impaired work ability [Unknown]
  - Abdominal discomfort [Unknown]
  - Sleep disorder [Unknown]
  - Toothache [Not Recovered/Not Resolved]
  - Condition aggravated [Not Recovered/Not Resolved]
  - Restless legs syndrome [Unknown]
  - Product dose omission issue [Unknown]
